FAERS Safety Report 25570620 (Version 2)
Quarter: 2025Q3

REPORT INFORMATION
  Report Type: Spontaneous
  Country: GB (occurrence: GB)
  Receive Date: 20250717
  Receipt Date: 20250729
  Transmission Date: 20251021
  Serious: Yes (Other)
  Sender: Rayner
  Company Number: GB-RAYNER Pharma-RPH202506-000008

PATIENT
  Age: 52 Year
  Sex: Female

DRUGS (1)
  1. OMIDRIA [Suspect]
     Active Substance: KETOROLAC\PHENYLEPHRINE
     Indication: Eye operation

REACTIONS (1)
  - Uveitis [Unknown]
